FAERS Safety Report 6747534-2 (Version None)
Quarter: 2010Q2

REPORT INFORMATION
  Report Type: 
  Country: None (occurrence: None)
  Receive Date: 20100528
  Receipt Date: 20100519
  Transmission Date: 20101027
  Serious: Yes (Other)
  Sender: FDA-Public Use
  Company Number: CH-NAPPMUNDI-DEU-2010-0006265

PATIENT
  Age: 52 Year
  Sex: Female

DRUGS (4)
  1. HYDROMORPHONE HCL [Suspect]
     Indication: BACK PAIN
     Dosage: 5.2 MG, DAILY
     Route: 037
  2. HYDROMORPHONE HCL [Suspect]
     Dosage: 2.5 MG, DAILY
     Route: 037
     Dates: start: 20080101
  3. OXYCODONE HYDROCHLORIDE [Concomitant]
     Indication: BACK PAIN
  4. ANALGESICS [Concomitant]

REACTIONS (2)
  - CAUDA EQUINA SYNDROME [None]
  - INJECTION SITE NODULE [None]
